FAERS Safety Report 6985736-0 (Version None)
Quarter: 2010Q3

REPORT INFORMATION
  Report Type: 
  Country: None (occurrence: None)
  Receive Date: 20100913
  Receipt Date: 20100827
  Transmission Date: 20110219
  Serious: Yes (Other)
  Sender: FDA-Public Use
  Company Number: 1000016079

PATIENT
  Sex: Female

DRUGS (1)
  1. FOSFOMYCIN (FOSFOMYCIN TROMETAMOL) (GRANULATE) [Suspect]
     Indication: URINARY TRACT INFECTION
     Dosage: 3000 MG, ONCE, ORAL
     Route: 048
     Dates: start: 20100816, end: 20100816

REACTIONS (2)
  - PARAESTHESIA [None]
  - PERIPHERAL COLDNESS [None]
